FAERS Safety Report 4648817-2 (Version None)
Quarter: 2005Q2

REPORT INFORMATION
  Report Type: 
  Country: None (occurrence: None)
  Receive Date: 20050429
  Receipt Date: 20050117
  Transmission Date: 20051028
  Serious: Yes (Hospitalization, Disabling)
  Sender: FDA-Public Use
  Company Number: US-MERCK-0501USA02877

PATIENT
  Age: 57 Year
  Sex: Female
  Weight: 68 kg

DRUGS (4)
  1. VIOXX [Suspect]
     Indication: ARTHRITIS
     Route: 048
     Dates: start: 19990101, end: 20040101
  2. TENORMIN [Concomitant]
     Route: 065
  3. PREMARIN [Concomitant]
     Route: 065
     Dates: start: 19840815, end: 20050305
  4. PROTONIX [Concomitant]
     Route: 065

REACTIONS (22)
  - ABDOMINAL PAIN UPPER [None]
  - ANAEMIA POSTOPERATIVE [None]
  - ANGINA UNSTABLE [None]
  - BLOOD TRIGLYCERIDES INCREASED [None]
  - CAROTID ARTERY STENOSIS [None]
  - CORONARY ARTERY DISEASE [None]
  - DIABETES MELLITUS [None]
  - DYSPNOEA [None]
  - EMOTIONAL DISTRESS [None]
  - HIP ARTHROPLASTY [None]
  - HYPERLIPIDAEMIA [None]
  - HYPERTRIGLYCERIDAEMIA [None]
  - INSULIN RESISTANCE SYNDROME [None]
  - LEUKOCYTOSIS [None]
  - MYOCARDIAL INFARCTION [None]
  - MYOCARDIAL ISCHAEMIA [None]
  - OEDEMA PERIPHERAL [None]
  - PAIN [None]
  - PARAESTHESIA [None]
  - REFUSAL OF TREATMENT BY PATIENT [None]
  - RHEUMATOID ARTHRITIS [None]
  - SLEEP APNOEA SYNDROME [None]
